FAERS Safety Report 14218280 (Version 1)
Quarter: 2017Q4

REPORT INFORMATION
  Report Type: Spontaneous
  Country: US (occurrence: US)
  Receive Date: 20171123
  Receipt Date: 20171123
  Transmission Date: 20180321
  Serious: Yes (Hospitalization)
  Sender: FDA-Public Use
  Company Number: US-ALEXION-A201712829

PATIENT
  Age: 4 Month
  Sex: Male
  Weight: 7.6 kg

DRUGS (1)
  1. STRENSIQ [Suspect]
     Active Substance: ASFOTASE ALFA
     Indication: HYPOPHOSPHATASIA
     Dosage: 2 UNK, UNK
     Route: 065

REACTIONS (4)
  - Dyspnoea [Unknown]
  - Blood phosphorus increased [Not Recovered/Not Resolved]
  - Blood parathyroid hormone decreased [Not Recovered/Not Resolved]
  - Blood calcium increased [Not Recovered/Not Resolved]
